FAERS Safety Report 25629409 (Version 1)
Quarter: 2025Q3

REPORT INFORMATION
  Report Type: Spontaneous
  Country: EU (occurrence: EU)
  Receive Date: 20250731
  Receipt Date: 20250731
  Transmission Date: 20251021
  Serious: Yes (Other)
  Sender: MYLAN
  Company Number: None

PATIENT
  Age: 94 Year
  Sex: Female

DRUGS (4)
  1. VENLAFAXINE [Suspect]
     Active Substance: VENLAFAXINE HYDROCHLORIDE
     Indication: Product used for unknown indication
     Dosage: 75 MILLIGRAM, QD (1 TABLET/DAY FOR LONG-TERM USE)
     Dates: end: 202505
  2. VENLAFAXINE [Suspect]
     Active Substance: VENLAFAXINE HYDROCHLORIDE
     Dosage: 75 MILLIGRAM, QD (1 TABLET/DAY FOR LONG-TERM USE)
     Route: 048
     Dates: end: 202505
  3. VENLAFAXINE [Suspect]
     Active Substance: VENLAFAXINE HYDROCHLORIDE
     Dosage: 75 MILLIGRAM, QD (1 TABLET/DAY FOR LONG-TERM USE)
     Route: 048
     Dates: end: 202505
  4. VENLAFAXINE [Suspect]
     Active Substance: VENLAFAXINE HYDROCHLORIDE
     Dosage: 75 MILLIGRAM, QD (1 TABLET/DAY FOR LONG-TERM USE)
     Dates: end: 202505

REACTIONS (5)
  - Suicidal ideation [Unknown]
  - Withdrawal syndrome [Unknown]
  - Product availability issue [Unknown]
  - Product substitution issue [Unknown]
  - Intentional product misuse [Unknown]

NARRATIVE: CASE EVENT DATE: 20250501
